FAERS Safety Report 12551696 (Version 2)
Quarter: 2016Q3

REPORT INFORMATION
  Report Type: Report from Study
  Country: AR (occurrence: AR)
  Receive Date: 20160713
  Receipt Date: 20160714
  Transmission Date: 20161109
  Serious: Yes (Life-Threatening)
  Sender: FDA-Public Use
  Company Number: PHHY2016AR093937

PATIENT
  Sex: Female

DRUGS (1)
  1. DIOVAN [Suspect]
     Active Substance: VALSARTAN
     Indication: HYPERTENSION
     Dosage: 80 OT, QD
     Route: 065

REACTIONS (9)
  - Hypokinesia [Unknown]
  - Head injury [Recovering/Resolving]
  - Apparent death [Unknown]
  - Back pain [Recovering/Resolving]
  - Bone pain [Recovering/Resolving]
  - Memory impairment [Recovering/Resolving]
  - Fatigue [Unknown]
  - Fall [Recovering/Resolving]
  - Back injury [Recovering/Resolving]
